FAERS Safety Report 10241269 (Version 1)
Quarter: 2014Q2

REPORT INFORMATION
  Report Type: Spontaneous
  Country: US (occurrence: US)
  Receive Date: 20140617
  Receipt Date: 20140617
  Transmission Date: 20141212
  Serious: No
  Sender: FDA-Public Use
  Company Number: US-PFIZER INC-2014162678

PATIENT
  Sex: Female

DRUGS (3)
  1. LYRICA [Suspect]
     Dosage: 150 MG, UNK
  2. LYRICA [Suspect]
     Dosage: UNK
  3. LYRICA [Suspect]
     Dosage: (HER PHYSICIAN UPPED THE DOSAGE AND ADDED 75MG UNKNOWN FREQUENCY TO HER EXISTING DOSAGE), UNK

REACTIONS (2)
  - Drug ineffective [Unknown]
  - Pain [Unknown]
